FAERS Safety Report 8407794-9 (Version None)
Quarter: 2012Q2

REPORT INFORMATION
  Report Type: 
  Country: None (occurrence: None)
  Receive Date: 20120604
  Receipt Date: 20120522
  Transmission Date: 20120825
  Serious: Yes (Life-Threatening, Hospitalization)
  Sender: FDA-Public Use
  Company Number: FR-GLAXOSMITHKLINE-B0803663A

PATIENT
  Sex: Male

DRUGS (2)
  1. ARIXTRA [Suspect]
     Indication: PHLEBITIS
     Dosage: 5MG PER DAY
     Route: 058
     Dates: start: 20120127, end: 20120129
  2. SIMVASTATIN [Concomitant]
     Dosage: 10MG PER DAY

REACTIONS (9)
  - DYSPHAGIA [None]
  - OVERDOSE [None]
  - HEADACHE [None]
  - LEUKOCYTOSIS [None]
  - INTRACRANIAL PRESSURE INCREASED [None]
  - HYPOAESTHESIA [None]
  - SUBDURAL HAEMORRHAGE [None]
  - SUBDURAL HAEMATOMA [None]
  - DYSARTHRIA [None]
